FAERS Safety Report 14362018 (Version 1)
Quarter: 2018Q1

REPORT INFORMATION
  Report Type: Spontaneous
  Country: US (occurrence: US)
  Receive Date: 20180108
  Receipt Date: 20180108
  Transmission Date: 20180509
  Serious: No
  Sender: FDA-Public Use
  Company Number: US-AUROBINDO-AUR-APU-2017-42293

PATIENT

DRUGS (1)
  1. DEXTROAMPHET SACCHARAT, AMPHET ASPARTATE, DEXTROAMPHET SULFATE AND AMPHET SULFAT [Suspect]
     Active Substance: AMPHETAMINE ASPARTATE\AMPHETAMINE SULFATE\DEXTROAMPHETAMINE SACCHARATE\DEXTROAMPHETAMINE SULFATE
     Indication: PRODUCT USED FOR UNKNOWN INDICATION
     Dosage: UNK
     Route: 065
     Dates: start: 20170910, end: 20170919

REACTIONS (10)
  - Feeling abnormal [Unknown]
  - Palpitations [Unknown]
  - Nervousness [Unknown]
  - Body temperature increased [Unknown]
  - Asthma [Unknown]
  - Nausea [Unknown]
  - Product substitution issue [Unknown]
  - Fatigue [Unknown]
  - Blood pressure increased [Unknown]
  - Hyperhidrosis [Unknown]
